FAERS Safety Report 15433277 (Version 1)
Quarter: 2018Q3

REPORT INFORMATION
  Report Type: Report from Study
  Country: US (occurrence: US)
  Receive Date: 20180927
  Receipt Date: 20180927
  Transmission Date: 20181010
  Serious: Yes (Other)
  Sender: FDA-Public Use
  Company Number: US-ROCHE-2188969

PATIENT
  Sex: Female

DRUGS (2)
  1. OCREVUS [Suspect]
     Active Substance: OCRELIZUMAB
     Indication: RELAPSING MULTIPLE SCLEROSIS
     Dosage: SPLIT DOSE ;ONGOING: UNKNOWN
     Route: 065
     Dates: start: 201708
  2. OCREVUS [Suspect]
     Active Substance: OCRELIZUMAB
     Dosage: FULL DOSE ;ONGOING: UNKNOWN
     Route: 065
     Dates: start: 201802

REACTIONS (3)
  - Cystitis [Unknown]
  - Respiratory tract infection [Unknown]
  - Sinusitis [Unknown]
